FAERS Safety Report 23587065 (Version 1)
Quarter: 2024Q1

REPORT INFORMATION
  Report Type: Spontaneous
  Country: US (occurrence: None)
  Receive Date: 20240301
  Receipt Date: 20240301
  Transmission Date: 20240409
  Serious: Yes (Life-Threatening, Other)
  Sender: FDA-Public Use
  Company Number: None

PATIENT
  Age: 48 Year
  Sex: Female
  Weight: 55.8 kg

DRUGS (1)
  1. OSELTAMIVIR PHOSPHATE [Suspect]
     Active Substance: OSELTAMIVIR PHOSPHATE
     Indication: Influenza A virus test positive
     Dosage: OTHER QUANTITY : 1 CAPSULE(S);?FREQUENCY : TWICE A DAY;?
     Route: 048
     Dates: start: 20240226, end: 20240228

REACTIONS (5)
  - Anxiety [None]
  - Insomnia [None]
  - Hyperhidrosis [None]
  - Hallucination [None]
  - Panic attack [None]

NARRATIVE: CASE EVENT DATE: 20240228
